FAERS Safety Report 8058691-2 (Version None)
Quarter: 2012Q1

REPORT INFORMATION
  Report Type: 
  Country: None (occurrence: None)
  Receive Date: 20120120
  Receipt Date: 20120117
  Transmission Date: 20120608
  Serious: Yes (Death)
  Sender: FDA-Public Use
  Company Number: US-PFIZER INC-2011308714

PATIENT
  Sex: Female

DRUGS (2)
  1. GEMZAR [Suspect]
     Indication: RENAL CANCER
     Dosage: 1600 MG, Q 14 DAYS
     Route: 042
     Dates: start: 20101118, end: 20110728
  2. SUTENT [Suspect]
     Indication: RENAL CELL CARCINOMA
     Dosage: 50 MG, 1X/DAY, 4 WEEKS ON, TWO WEEKS OFF
     Route: 048
     Dates: start: 20101118, end: 20110505

REACTIONS (2)
  - DISEASE PROGRESSION [None]
  - RENAL CANCER METASTATIC [None]
